FAERS Safety Report 22361388 (Version 5)
Quarter: 2024Q2

REPORT INFORMATION
  Report Type: Spontaneous
  Country: US (occurrence: US)
  Receive Date: 20230524
  Receipt Date: 20240417
  Transmission Date: 20240716
  Serious: Yes (Hospitalization, Other)
  Sender: FDA-Public Use
  Company Number: US-PFIZER INC-202300197677

PATIENT
  Age: 13 Year
  Sex: Female
  Weight: 63.492 kg

DRUGS (2)
  1. OXBRYTA [Suspect]
     Active Substance: VOXELOTOR
     Indication: Sickle cell disease
     Dosage: 300 MILLIGRAMS, FIVE TABLETS/300MG ORAL SUSPENION 5 TABLETS DAILY
     Route: 048
     Dates: start: 202305
  2. OXBRYTA [Suspect]
     Active Substance: VOXELOTOR
     Dosage: 300 MG, 3 TABLETS DAILY
     Route: 048

REACTIONS (4)
  - Sickle cell anaemia with crisis [Unknown]
  - Pulmonary embolism [Recovering/Resolving]
  - Pyrexia [Unknown]
  - Off label use [Unknown]
